FAERS Safety Report 21656919 (Version 3)
Quarter: 2023Q1

REPORT INFORMATION
  Report Type: Report from Study
  Country: CA (occurrence: CA)
  Receive Date: 20221129
  Receipt Date: 20230215
  Transmission Date: 20230418
  Serious: Yes (Other)
  Sender: FDA-Public Use
  Company Number: CA-002147023-NVSC2021CA280544

PATIENT
  Age: 65 Year
  Sex: Female

DRUGS (5)
  1. HYRIMOZ [Suspect]
     Active Substance: ADALIMUMAB-ADAZ
     Indication: Crohn^s disease
     Dosage: 40 MG
     Route: 058
     Dates: start: 20210728
  2. HYRIMOZ [Suspect]
     Active Substance: ADALIMUMAB-ADAZ
     Dosage: UNK, QW
     Route: 058
     Dates: end: 202209
  3. HYRIMOZ [Suspect]
     Active Substance: ADALIMUMAB-ADAZ
     Dosage: UNK, Q2W
     Route: 058
     Dates: start: 20221207
  4. HYRIMOZ [Suspect]
     Active Substance: ADALIMUMAB-ADAZ
     Dosage: 40 MG
     Route: 058
     Dates: start: 20230111
  5. PREDNISONE [Concomitant]
     Active Substance: PREDNISONE
     Indication: Product used for unknown indication
     Dosage: UNK, (TAPERING DOSE)
     Route: 065
     Dates: start: 202210

REACTIONS (17)
  - Retinal tear [Recovered/Resolved]
  - Arthralgia [Recovering/Resolving]
  - Limb discomfort [Not Recovered/Not Resolved]
  - Contusion [Not Recovered/Not Resolved]
  - Gait disturbance [Not Recovered/Not Resolved]
  - Red blood cell count increased [Not Recovered/Not Resolved]
  - Illness [Not Recovered/Not Resolved]
  - Chest pain [Recovering/Resolving]
  - Malaise [Not Recovered/Not Resolved]
  - Condition aggravated [Unknown]
  - General physical condition abnormal [Recovering/Resolving]
  - Retinal disorder [Unknown]
  - Fistula [Unknown]
  - COVID-19 [Unknown]
  - Abdominal pain [Not Recovered/Not Resolved]
  - Headache [Not Recovered/Not Resolved]
  - Product storage error [Unknown]

NARRATIVE: CASE EVENT DATE: 20220801
